FAERS Safety Report 7121547-3 (Version None)
Quarter: 2010Q4

REPORT INFORMATION
  Report Type: 
  Country: None (occurrence: None)
  Receive Date: 20101124
  Receipt Date: 20101112
  Transmission Date: 20110411
  Serious: Yes (Hospitalization)
  Sender: FDA-Public Use
  Company Number: US-CELGENEUS-163-20785-10110181

PATIENT
  Sex: Female

DRUGS (3)
  1. THALOMID [Suspect]
     Route: 048
     Dates: start: 20031101, end: 20040101
  2. THALOMID [Suspect]
     Dosage: 200-50MG
     Route: 048
     Dates: start: 20050501
  3. THALOMID [Suspect]
     Route: 048
     Dates: start: 20100701

REACTIONS (2)
  - CARDIAC DISORDER [None]
  - GENERAL PHYSICAL HEALTH DETERIORATION [None]
